FAERS Safety Report 4506059-5 (Version None)
Quarter: 2004Q4

REPORT INFORMATION
  Report Type: 
  Country: None (occurrence: None)
  Receive Date: 20041025
  Receipt Date: 20040604
  Transmission Date: 20050328
  Serious: Yes (Hospitalization)
  Sender: FDA-Public Use
  Company Number: US-JNJFOC-20040502569

PATIENT
  Age: 38 Year
  Sex: Female
  Weight: 96.6162 kg

DRUGS (10)
  1. REMICADE [Suspect]
     Indication: CROHN'S DISEASE
     Dosage: , 1 IN 8 WEEK, INTRAVENOUS
     Route: 042
     Dates: start: 20030501
  2. MERCAPTOPURINE [Suspect]
     Indication: CROHN'S DISEASE
     Dosage: 100 MG, 1 IN 1 DAY, ORAL
     Route: 048
  3. PREVACID [Concomitant]
  4. LIBRAX [Concomitant]
  5. FOLIC ACID [Concomitant]
  6. VITAMIN B12 (CYANOCOBALAMIN) INJECTION [Concomitant]
  7. ALLERGY SHOTS (ALLERGY MEDICATION) INJECTION [Concomitant]
  8. DEPO-PROVERA SUSPENSION/INJ [Concomitant]
  9. VICODIN [Concomitant]
  10. AMITRIPTYLINE (AMITRIPTYLINE) [Concomitant]

REACTIONS (2)
  - CYTOMEGALOVIRUS ANTIBODY POSITIVE [None]
  - VIRAL INFECTION [None]
